FAERS Safety Report 4600870-8 (Version None)
Quarter: 2005Q1

REPORT INFORMATION
  Report Type: 
  Country: None (occurrence: None)
  Receive Date: 20050204
  Receipt Date: 20040414
  Transmission Date: 20050727
  Serious: Yes (Hospitalization)
  Sender: FDA-Public Use
  Company Number: US-SHR-04-022941

PATIENT
  Age: 37 Year
  Sex: Female
  Weight: 82.5 kg

DRUGS (1)
  1. MIRENA [Suspect]
     Indication: CONTRACEPTION
     Dosage: 20 MICROG/DAY, CONT, INTRA-UTERINE
     Route: 015
     Dates: start: 20020108, end: 20040229

REACTIONS (2)
  - ECTOPIC PREGNANCY [None]
  - PERITONEAL HAEMORRHAGE [None]
